FAERS Safety Report 17645380 (Version 1)
Quarter: 2020Q2

REPORT INFORMATION
  Report Type: Spontaneous
  Country: US (occurrence: US)
  Receive Date: 20200408
  Receipt Date: 20200408
  Transmission Date: 20200713
  Serious: No
  Sender: FDA-Public Use
  Company Number: None

PATIENT
  Age: 42 Year
  Sex: Male

DRUGS (2)
  1. WARFARIN [Suspect]
     Active Substance: WARFARIN
     Route: 048
  2. NAFCILLIN [Concomitant]
     Active Substance: NAFCILLIN SODIUM

REACTIONS (5)
  - Blood albumin decreased [None]
  - International normalised ratio increased [None]
  - Anticoagulation drug level increased [None]
  - Endocarditis staphylococcal [None]
  - Staphylococcal infection [None]

NARRATIVE: CASE EVENT DATE: 20191007
